FAERS Safety Report 9014674 (Version 1)
Quarter: 2013Q1

REPORT INFORMATION
  Report Type: Report from Study
  Country: ID (occurrence: ID)
  Receive Date: 20130115
  Receipt Date: 20130115
  Transmission Date: 20140127
  Serious: Yes (Death)
  Sender: FDA-Public Use
  Company Number: ID-SANOFI-AVENTIS-2013SA003036

PATIENT
  Sex: 0

DRUGS (6)
  1. RIFAMPICIN [Suspect]
     Indication: MENINGITIS TUBERCULOUS
     Dosage: 600 MG DILUTED IN 250 ML OF NORMAL SALINE INFUSION (0?9% SODIUM CHLORIDE) AND GIVEN OVER 90 MIN
     Route: 042
  2. ISONIAZID [Suspect]
     Indication: MENINGITIS TUBERCULOUS
     Route: 048
  3. PYRAZINAMIDE [Suspect]
     Indication: MENINGITIS TUBERCULOUS
     Route: 048
  4. MOXIFLOXACIN [Suspect]
     Indication: MENINGITIS TUBERCULOUS
     Route: 065
  5. PYRIDOXINE [Concomitant]
     Indication: MENINGITIS TUBERCULOUS
     Route: 048
  6. DEXAMETHASONE [Concomitant]
     Indication: MENINGITIS TUBERCULOUS

REACTIONS (1)
  - Anaphylactic shock [Fatal]
